FAERS Safety Report 6853474-0 (Version None)
Quarter: 2010Q3

REPORT INFORMATION
  Report Type: 
  Country: None (occurrence: None)
  Receive Date: 20100717
  Receipt Date: 20071210
  Transmission Date: 20110219
  Serious: No
  Sender: FDA-Public Use
  Company Number: US-PFIZER INC-2007105345

PATIENT
  Sex: Male
  Weight: 90.909 kg

DRUGS (1)
  1. CHANTIX [Suspect]
     Indication: SMOKING CESSATION THERAPY
     Dates: start: 20071202, end: 20071205

REACTIONS (4)
  - ABNORMAL DREAMS [None]
  - DIARRHOEA [None]
  - DISORIENTATION [None]
  - INCORRECT DOSE ADMINISTERED [None]
